FAERS Safety Report 12948338 (Version 1)
Quarter: 2016Q4

REPORT INFORMATION
  Report Type: Spontaneous
  Country: GB (occurrence: GB)
  Receive Date: 20161117
  Receipt Date: 20161117
  Transmission Date: 20170207
  Serious: Yes (Hospitalization)
  Sender: FDA-Public Use
  Company Number: GB-TEVA-711307ACC

PATIENT
  Age: 72 Year
  Sex: Female

DRUGS (18)
  1. COCODAMOL [Concomitant]
     Active Substance: ACETAMINOPHEN\CODEINE PHOSPHATE
  2. DOMPERIDONE [Concomitant]
     Active Substance: DOMPERIDONE
  3. BETAHISTINE [Concomitant]
     Active Substance: BETAHISTINE
  4. LANSOPRAZOLE. [Concomitant]
     Active Substance: LANSOPRAZOLE
  5. SOLIFENACIN [Concomitant]
     Active Substance: SOLIFENACIN
  6. ASPIRIN. [Concomitant]
     Active Substance: ASPIRIN
  7. FOLIC ACID. [Concomitant]
     Active Substance: FOLIC ACID
  8. METFORMIN [Concomitant]
     Active Substance: METFORMIN HYDROCHLORIDE
     Dosage: DISCONTINUED
  9. FERROUS SULFATE. [Suspect]
     Active Substance: FERROUS SULFATE
     Indication: IRON DEFICIENCY
     Dosage: 325 MILLIGRAM DAILY;
     Route: 048
     Dates: start: 2016, end: 20160904
  10. AMOXICILLIN. [Suspect]
     Active Substance: AMOXICILLIN
     Indication: LOWER RESPIRATORY TRACT INFECTION
     Dosage: 1500 MILLIGRAM DAILY; 500MG TDS FOR 7 DAYS
     Route: 048
     Dates: start: 20160902, end: 20160904
  11. IRBESARTAN. [Concomitant]
     Active Substance: IRBESARTAN
     Dosage: DISCONTINUED
  12. GLYCERYL TRINITRATE [Concomitant]
     Active Substance: NITROGLYCERIN
  13. BISOPROLOL [Concomitant]
     Active Substance: BISOPROLOL
     Dosage: STOPPED
  14. LOPERAMIDE [Concomitant]
     Active Substance: LOPERAMIDE
  15. COVONIA DRY COUGH [Suspect]
     Active Substance: PHOLCODINE
     Indication: COUGH
     Route: 048
     Dates: start: 20160829, end: 20160830
  16. E45 [Concomitant]
     Active Substance: LANOLIN\LIGHT MINERAL OIL\PARAFFIN
  17. FUROSEMIDE. [Concomitant]
     Active Substance: FUROSEMIDE
     Dosage: WITHHELD
  18. SIMVASTATIN. [Concomitant]
     Active Substance: SIMVASTATIN

REACTIONS (6)
  - Sinus bradycardia [Unknown]
  - Urine output decreased [Unknown]
  - Sinus node dysfunction [Unknown]
  - Sinus arrest [Unknown]
  - Acute kidney injury [Unknown]
  - Diarrhoea [Recovered/Resolved]

NARRATIVE: CASE EVENT DATE: 20160830
